FAERS Safety Report 7858901 (Version 5)
Quarter: 2012Q4

REPORT INFORMATION
  Report Type: Report from Study
  Country: JP (occurrence: JP)
  Receive Date: 20110316
  Receipt Date: 20121105
  Transmission Date: 20130627
  Serious: Yes (Life-Threatening, Hospitalization, Other)
  Sender: FDA-Public Use
  Company Number: JP-CELGENEUS-087-21880-10102310

PATIENT
  Age: 37 Year
  Sex: Male

DRUGS (20)
  1. REVLIMID [Suspect]
     Indication: MULTIPLE MYELOMA
     Dosage: 25 Milligram
     Route: 048
     Dates: start: 20101008, end: 20101028
  2. REVLIMID [Suspect]
     Dosage: 25 Milligram
     Route: 048
     Dates: start: 20101105, end: 20101125
  3. REVLIMID [Suspect]
     Dosage: 25 Milligram
     Route: 048
     Dates: start: 20101203, end: 20101211
  4. REVLIMID [Suspect]
     Dosage: 25 Milligram
     Route: 048
     Dates: start: 20110119, end: 20110208
  5. REVLIMID [Suspect]
     Dosage: 25 Milligram
     Route: 048
     Dates: start: 20110313, end: 20110404
  6. REVLIMID [Suspect]
     Dosage: 25 Milligram
     Route: 048
     Dates: start: 20110424, end: 20110507
  7. REVLIMID [Suspect]
     Dosage: 15 Milligram
     Route: 048
     Dates: start: 20110508, end: 20110514
  8. LENADEX [Suspect]
     Indication: MULTIPLE MYELOMA
     Dosage: 4 Milligram
     Route: 048
     Dates: start: 20101008, end: 20101011
  9. LENADEX [Suspect]
     Dosage: 4 Milligram
     Route: 048
     Dates: start: 20101015, end: 20101021
  10. LENADEX [Suspect]
     Dosage: 4 Milligram
     Route: 048
     Dates: start: 20101112, end: 20101125
  11. LENADEX [Suspect]
     Dosage: 4 Milligram
     Route: 048
     Dates: start: 20110119, end: 20110123
  12. DECADRON [Concomitant]
     Indication: MULTIPLE MYELOMA
     Dosage: 2 Milligram
     Route: 048
     Dates: start: 20101022, end: 20101028
  13. DECADRON [Concomitant]
     Dosage: 1 Milligram
     Route: 048
     Dates: start: 20101105, end: 20101111
  14. DECADRON [Concomitant]
     Dosage: 12 Milligram
     Route: 048
     Dates: start: 20101126, end: 20101211
  15. DECADRON [Concomitant]
     Dosage: 2 Milligram
     Route: 048
     Dates: start: 20110124, end: 20110125
  16. BAYASPIRIN [Concomitant]
     Indication: PROPHYLAXIS
     Dosage: 100 Milligram
     Route: 048
     Dates: start: 20101008
  17. OMEPRAL [Concomitant]
     Indication: PROPHYLAXIS
     Dosage: 10 Milligram
     Route: 048
     Dates: start: 20101008
  18. MYSLEE [Concomitant]
     Indication: INSOMNIA
     Dosage: 5 Milligram
     Route: 048
  19. PREDONINE [Concomitant]
     Indication: MULTIPLE MYELOMA
     Dosage: 5 Milligram
     Route: 048
     Dates: start: 20110126, end: 20110127
  20. PREDONINE [Concomitant]
     Dosage: 2.5 Milligram
     Route: 048
     Dates: start: 20110128, end: 20110129

REACTIONS (4)
  - Hyperglycaemia [Recovering/Resolving]
  - Platelet count decreased [Recovered/Resolved]
  - Neuropathy peripheral [Not Recovered/Not Resolved]
  - Lymphadenopathy [Recovered/Resolved]
